FAERS Safety Report 10474502 (Version 3)
Quarter: 2014Q4

REPORT INFORMATION
  Report Type: Spontaneous
  Country: IT (occurrence: IT)
  Receive Date: 20140924
  Receipt Date: 20141006
  Transmission Date: 20150528
  Serious: Yes (Hospitalization, Other)
  Sender: FDA-Public Use
  Company Number: IT-MERCK-1409ITA011183

PATIENT
  Age: 20 Year
  Sex: Female

DRUGS (8)
  1. DELTACORTENE [Suspect]
     Active Substance: PREDNISONE
     Dosage: 3 POSOLOGICAL UNTIS DAILY, TOTAL
     Route: 048
     Dates: start: 20140815, end: 20140815
  2. ACECLOFENAC [Suspect]
     Active Substance: ACECLOFENAC
     Dosage: 1500 MG DAILY, FREQUENCY: TOTAL
     Dates: start: 20140815, end: 20140815
  3. TRANEX [Suspect]
     Active Substance: TRANEXAMIC ACID
     Dosage: 5 POSOLOGICAL UNITS, TOTAL ADMINISTRATION
     Route: 048
     Dates: start: 20140815
  4. VITAMIN B COMPLEX [Suspect]
     Active Substance: CYANOCOBALAMIN\DEXPANTHENOL\NIACINAMIDE\PYRIDOXINE HYDROCHLORIDE\RIBOFLAVIN 5^-PHOSPHATE SODIUM\THIAMINE HYDROCHLORIDE\VITAMIN B COMPLEX
     Dosage: 10 POSOLOGICAL UNTIS, FREQUENCY: TOTAL
     Dates: start: 20140815, end: 20140815
  5. IBUPROFEN. [Suspect]
     Active Substance: IBUPROFEN
     Dosage: 1000 MG, TOTAL ADMINISTRATION
     Dates: start: 20140815
  6. AERIUS [Suspect]
     Active Substance: DESLORATADINE
     Dosage: 10 POSOLOGICAL UNITS DAILY, FREQUENCY: TOTAL
     Route: 048
     Dates: start: 20140815, end: 20140815
  7. ASPIRINA [Suspect]
     Active Substance: ASPIRIN
     Dosage: 5 POSOLOGICAL UNITS, TOTAL ADMINISTRATION
     Route: 048
     Dates: start: 20140815
  8. TACHIPIRINA [Suspect]
     Active Substance: ACETAMINOPHEN
     Dosage: 8 POSOLOGICAL UNITS, TOTAL ADMINISTRATION
     Route: 048
     Dates: start: 20140815

REACTIONS (1)
  - Suicide attempt [Recovered/Resolved]

NARRATIVE: CASE EVENT DATE: 20140815
